FAERS Safety Report 22098229 (Version 1)
Quarter: 2023Q1

REPORT INFORMATION
  Report Type: Spontaneous
  Country: US (occurrence: None)
  Receive Date: 20230314
  Receipt Date: 20230314
  Transmission Date: 20230418
  Serious: Yes (Other)
  Sender: FDA-Public Use
  Company Number: None

PATIENT
  Age: 63 Day
  Sex: Female
  Weight: 57.6 kg

DRUGS (11)
  1. FENTANYL TRANSDERMAL SYSTEM [Suspect]
     Active Substance: FENTANYL
     Indication: Pain
     Dosage: OTHER FREQUENCY : EVERY 3 DAYS;?
     Route: 061
  2. FENTANYL [Concomitant]
  3. TRAZODONE [Concomitant]
     Active Substance: TRAZODONE HYDROCHLORIDE
  4. PROTONIX [Concomitant]
     Active Substance: PANTOPRAZOLE SODIUM
  5. Colestapal [Concomitant]
  6. Bentil [Concomitant]
  7. OXYCODONE [Concomitant]
  8. XANAX [Concomitant]
  9. Diphenexolate [Concomitant]
  10. REMERON [Concomitant]
     Active Substance: MIRTAZAPINE
  11. D3,, e, c [Concomitant]

REACTIONS (3)
  - Pain [None]
  - Drug withdrawal syndrome [None]
  - Gait disturbance [None]

NARRATIVE: CASE EVENT DATE: 20230224
